FAERS Safety Report 10358526 (Version 3)
Quarter: 2014Q3

REPORT INFORMATION
  Report Type: Spontaneous
  Country: US (occurrence: US)
  Receive Date: 20140801
  Receipt Date: 20140903
  Transmission Date: 20150326
  Serious: Yes (Death, Life-Threatening, Hospitalization)
  Sender: FDA-Public Use
  Company Number: US-B.I. PHARMACEUTICALS,INC./RIDGEFIELD-2014-BI-35072BP

PATIENT
  Sex: Male
  Weight: 73.48 kg

DRUGS (4)
  1. MORPHINE [Concomitant]
     Active Substance: MORPHINE
     Indication: PRODUCT USED FOR UNKNOWN INDICATION
     Dosage: 1.5 ML
     Route: 048
     Dates: start: 201403
  2. ATIVAN [Concomitant]
     Active Substance: LORAZEPAM
     Indication: PRODUCT USED FOR UNKNOWN INDICATION
     Dosage: 3 MG
     Route: 048
     Dates: start: 201212
  3. IPRATROPIUM BROMIDE. [Concomitant]
     Active Substance: IPRATROPIUM BROMIDE
     Indication: CHRONIC OBSTRUCTIVE PULMONARY DISEASE
     Dosage: 2 MG
     Route: 055
     Dates: start: 201403
  4. SPIRIVA [Suspect]
     Active Substance: TIOTROPIUM BROMIDE MONOHYDRATE
     Indication: CHRONIC OBSTRUCTIVE PULMONARY DISEASE
     Dosage: 18 MCG
     Route: 055
     Dates: start: 2011

REACTIONS (15)
  - Dysphagia [Not Recovered/Not Resolved]
  - Exercise lack of [Not Recovered/Not Resolved]
  - Dyspnoea [Not Recovered/Not Resolved]
  - Amyotrophic lateral sclerosis [Fatal]
  - Pulmonary hypertension [Recovered/Resolved]
  - Dyspnoea [Recovered/Resolved]
  - Restless legs syndrome [Not Recovered/Not Resolved]
  - Eye movement disorder [Recovered/Resolved]
  - Abnormal loss of weight [Recovered/Resolved]
  - Eating disorder [Not Recovered/Not Resolved]
  - Muscular weakness [Not Recovered/Not Resolved]
  - Total lung capacity decreased [Not Recovered/Not Resolved]
  - Muscular weakness [Not Recovered/Not Resolved]
  - Anxiety [Not Recovered/Not Resolved]
  - Loss of consciousness [Recovered/Resolved]

NARRATIVE: CASE EVENT DATE: 2012
